FAERS Safety Report 8762359 (Version 1)
Quarter: 2012Q4

REPORT INFORMATION
  Report Type: 
  Country: GB (occurrence: GB)
  Receive Date: 20120830
  Receipt Date: 20120830
  Transmission Date: 20130627
  Serious: Yes (Life-Threatening, Hospitalization)
  Sender: FDA-Public Use
  Company Number: PHHY2012GB074513

PATIENT
  Age: 58 Year
  Sex: Female
  Weight: 78.46 kg

DRUGS (3)
  1. AMOXICILLIN\CLAVULANATE POTASSIUM [Suspect]
     Dosage: 1.2 g
     Route: 040
     Dates: start: 20120803
  2. LISINOPRIL [Concomitant]
  3. OMEPRAZOLE [Concomitant]

REACTIONS (10)
  - Cholecystitis acute [Recovering/Resolving]
  - Liver function test abnormal [Unknown]
  - Alanine aminotransferase increased [Unknown]
  - Gamma-glutamyltransferase increased [Unknown]
  - Pyrexia [Unknown]
  - Inflammatory marker increased [Unknown]
  - Nausea [Unknown]
  - Abdominal pain upper [Unknown]
  - Vomiting [Unknown]
  - Cholelithiasis [Recovering/Resolving]
